FAERS Safety Report 15132714 (Version 4)
Quarter: 2018Q3

REPORT INFORMATION
  Report Type: Spontaneous
  Country: CN (occurrence: CN)
  Receive Date: 20180712
  Receipt Date: 20180831
  Transmission Date: 20181010
  Serious: Yes (Hospitalization, Other)
  Sender: FDA-Public Use
  Company Number: CN-009507513-1807CHN005159

PATIENT
  Age: 62 Year
  Sex: Male

DRUGS (1)
  1. INVANZ [Suspect]
     Active Substance: ERTAPENEM SODIUM
     Indication: INTESTINAL OBSTRUCTION
     Dosage: 1.0 G, ONCE DAILY
     Route: 042
     Dates: start: 201501, end: 201501

REACTIONS (3)
  - Somnambulism [Recovered/Resolved]
  - Off label use [Unknown]
  - Delirium [Recovered/Resolved]

NARRATIVE: CASE EVENT DATE: 201501
